FAERS Safety Report 8573065-3 (Version None)
Quarter: 2012Q3

REPORT INFORMATION
  Report Type: 
  Country: None (occurrence: None)
  Receive Date: 20120806
  Receipt Date: 20120723
  Transmission Date: 20120928
  Serious: Yes (Hospitalization, Other)
  Sender: FDA-Public Use
  Company Number: GB-VERTEX PHARMACEUTICALS INC.-000000000000000706

PATIENT
  Sex: Male
  Weight: 63 kg

DRUGS (11)
  1. INCIVO [Suspect]
     Indication: HEPATITIS C
     Dosage: DOSAGE FORM: TABLET
     Route: 048
     Dates: start: 20120226, end: 20120509
  2. IBUPROFEN [Concomitant]
     Indication: PAIN
     Route: 065
     Dates: end: 20120508
  3. METHADONE HCL [Concomitant]
     Indication: DEPENDENCE
  4. ALBUTEROL SULATE [Concomitant]
     Indication: CHRONIC OBSTRUCTIVE PULMONARY DISEASE
     Route: 065
  5. ACETAMINOPHEN [Concomitant]
     Indication: PAIN
  6. RIBAVIRIN [Concomitant]
     Indication: HEPATITIS C
     Dates: start: 20120115, end: 20120509
  7. VIRAFERONPEG [Concomitant]
     Indication: HEPATITIS C
     Route: 065
     Dates: start: 20120115, end: 20120509
  8. SERETIDE [Concomitant]
     Indication: CHRONIC OBSTRUCTIVE PULMONARY DISEASE
  9. DARBEPOETIN ALFA [Concomitant]
     Indication: ANAEMIA
     Dates: start: 20120329, end: 20120509
  10. TIOTROPIUM [Concomitant]
     Indication: CHRONIC OBSTRUCTIVE PULMONARY DISEASE
     Route: 065
  11. MIRTAZAPINE [Concomitant]
     Indication: DEPRESSION
     Route: 065

REACTIONS (4)
  - ANAEMIA [None]
  - URINARY TRACT INFECTION [None]
  - LOWER RESPIRATORY TRACT INFECTION [None]
  - RENAL IMPAIRMENT [None]
